FAERS Safety Report 19983217 (Version 1)
Quarter: 2021Q4

REPORT INFORMATION
  Report Type: Spontaneous
  Country: US (occurrence: US)
  Receive Date: 20211020
  Receipt Date: 20211020
  Transmission Date: 20220303
  Serious: Yes (Hospitalization)
  Sender: FDA-Public Use
  Company Number: None

PATIENT
  Age: 65 Year
  Sex: Female

DRUGS (30)
  1. ENBREL [Suspect]
     Active Substance: ETANERCEPT
     Indication: Rheumatoid arthritis
     Route: 058
     Dates: start: 20210318
  2. AMLODIPINE [Concomitant]
     Active Substance: AMLODIPINE BESYLATE
  3. ARIPIPRAZOLE [Concomitant]
     Active Substance: ARIPIPRAZOLE
  4. ATENOLOL\CHLORTHALIDONE [Concomitant]
     Active Substance: ATENOLOL\CHLORTHALIDONE
  5. BENZONATATE [Concomitant]
     Active Substance: BENZONATATE
  6. BROM/PSE/DM [Concomitant]
  7. DULOXETINE [Concomitant]
     Active Substance: DULOXETINE
  8. ESCITALOPRAM [Concomitant]
     Active Substance: ESCITALOPRAM OXALATE
  9. FAMOTIDINE [Concomitant]
     Active Substance: FAMOTIDINE
  10. GABAPENTIN [Concomitant]
     Active Substance: GABAPENTIN
  11. ACETAMINOPHEN\HYDROCODONE [Concomitant]
     Active Substance: ACETAMINOPHEN\HYDROCODONE
  12. HYDROMORPHONE [Concomitant]
     Active Substance: HYDROMORPHONE
  13. HYDROXYZINE HYDROCHLORIDE [Concomitant]
     Active Substance: HYDROXYZINE HYDROCHLORIDE
  14. LEFLUNOMIDE [Concomitant]
     Active Substance: LEFLUNOMIDE
  15. LIDOCAINE PAD [Concomitant]
  16. MECLOFEN SOD [Concomitant]
  17. METHOCARBAMOL [Concomitant]
     Active Substance: METHOCARBAMOL
  18. NAPROXEN [Concomitant]
     Active Substance: NAPROXEN
  19. NARATRIPTAN [Concomitant]
     Active Substance: NARATRIPTAN HYDROCHLORIDE
  20. NITROFURANTOIN [Concomitant]
     Active Substance: NITROFURANTOIN
  21. ONDANSETRON [Concomitant]
     Active Substance: ONDANSETRON
  22. OXYCODONE AND ACETAMINOPHEN [Concomitant]
     Active Substance: ACETAMINOPHEN\OXYCODONE HYDROCHLORIDE
  23. PREDNISONE [Concomitant]
     Active Substance: PREDNISONE
  24. PREGABALIN [Concomitant]
     Active Substance: PREGABALIN
  25. PROCHLORPER [Concomitant]
  26. SULFAMETHOXAZOLE\TRIMETHOPRIM [Concomitant]
     Active Substance: SULFAMETHOXAZOLE\TRIMETHOPRIM
  27. SUCRALFATE [Concomitant]
     Active Substance: SUCRALFATE
  28. TRAMADOL HCL [Concomitant]
     Active Substance: TRAMADOL HYDROCHLORIDE
  29. ZOLMITRIPTAN [Concomitant]
     Active Substance: ZOLMITRIPTAN
  30. ZOLPIDEM [Concomitant]
     Active Substance: ZOLPIDEM TARTRATE

REACTIONS (2)
  - Infection [None]
  - Therapy interrupted [None]

NARRATIVE: CASE EVENT DATE: 20211020
